FAERS Safety Report 9110655 (Version 1)
Quarter: 2013Q1

REPORT INFORMATION
  Report Type: Spontaneous
  Country: US (occurrence: US)
  Receive Date: 20130219
  Receipt Date: 20130219
  Transmission Date: 20140127
  Serious: No
  Sender: FDA-Public Use
  Company Number: US-BRISTOL-MYERS SQUIBB COMPANY-16556417

PATIENT
  Age: 60 Year
  Sex: Female

DRUGS (1)
  1. ORENCIA FOR INJ 250 MG/VIAL [Suspect]
     Indication: RHEUMATOID ARTHRITIS
     Dosage: LAST INF:06DEC12?STRENGTH:250MG?FORM:INJ,POWDER,LYOPHILIZED
     Route: 042
     Dates: start: 201202

REACTIONS (6)
  - Arthralgia [Not Recovered/Not Resolved]
  - Infection [Unknown]
  - Neuropathy peripheral [Unknown]
  - Migraine [Unknown]
  - Weight decreased [Unknown]
  - Drug ineffective [Unknown]
